FAERS Safety Report 12981360 (Version 2)
Quarter: 2017Q1

REPORT INFORMATION
  Report Type: Spontaneous
  Country: BR (occurrence: BR)
  Receive Date: 20161129
  Receipt Date: 20170209
  Transmission Date: 20170428
  Serious: Yes (Other)
  Sender: FDA-Public Use
  Company Number: BR-AMGEN-BRASP2016167907

PATIENT
  Age: 62 Year
  Sex: Male

DRUGS (5)
  1. PROCORALAN [Suspect]
     Active Substance: IVABRADINE
     Dosage: 7.5 MG, BID
     Route: 065
     Dates: start: 20161119
  2. PROCORALAN [Suspect]
     Active Substance: IVABRADINE
     Dosage: 15 MG, SINGLE
     Route: 065
     Dates: start: 20161118, end: 20161118
  3. ATORVASTATIN CALCIUM. [Concomitant]
     Active Substance: ATORVASTATIN CALCIUM
     Indication: HYPERCHOLESTEROLAEMIA
     Dosage: 40 MG, QD
     Route: 048
     Dates: start: 2011
  4. PROCORALAN [Suspect]
     Active Substance: IVABRADINE
     Indication: CARDIAC FAILURE
     Dosage: 7.5 MG, BID
     Route: 048
     Dates: start: 2011, end: 20161117
  5. ATENOLOL. [Concomitant]
     Active Substance: ATENOLOL
     Indication: HYPERTENSION
     Dosage: 50 MG, BID
     Route: 048
     Dates: start: 2011

REACTIONS (3)
  - Laziness [Recovered/Resolved]
  - Accidental overdose [Recovered/Resolved]
  - Bradycardia [Recovered/Resolved]

NARRATIVE: CASE EVENT DATE: 20161118
